FAERS Safety Report 10145061 (Version 1)
Quarter: 2014Q2

REPORT INFORMATION
  Report Type: Spontaneous
  Country: CA (occurrence: CA)
  Receive Date: 20140501
  Receipt Date: 20140501
  Transmission Date: 20141212
  Serious: Yes (Hospitalization)
  Sender: FDA-Public Use
  Company Number: CA-009507513-1404CAN014551

PATIENT
  Age: 59 Year
  Sex: Male
  Weight: 94.79 kg

DRUGS (2)
  1. FOSAMAX [Suspect]
     Dosage: 70 MG, QW
     Route: 048
  2. CALCIUM (UNSPECIFIED) [Suspect]
     Dosage: 2 DF, QD
     Route: 048

REACTIONS (1)
  - Nephrolithiasis [Unknown]
